FAERS Safety Report 8093366-5 (Version None)
Quarter: 2012Q1

REPORT INFORMATION
  Report Type: 
  Country: None (occurrence: None)
  Receive Date: 20120131
  Receipt Date: 20120126
  Transmission Date: 20120608
  Serious: Yes (Disabling, Other)
  Sender: FDA-Public Use
  Company Number: US-PFIZER INC-2012022906

PATIENT
  Sex: Female
  Weight: 64.9 kg

DRUGS (9)
  1. CORDARONE [Suspect]
     Indication: ATRIAL FIBRILLATION
  2. DIGOXIN [Concomitant]
     Indication: CARDIAC DISORDER
     Dosage: 125 UG, 3 TIMES A WEEK
  3. WARFARIN [Concomitant]
     Indication: CARDIAC DISORDER
     Dosage: 2 MG, DAILY
  4. WARFARIN [Concomitant]
     Indication: THROMBOSIS
  5. FUROSEMIDE [Concomitant]
     Indication: CARDIAC DISORDER
     Dosage: 40 MG, 4X/DAY
  6. SIMVASTATIN [Concomitant]
     Indication: CARDIAC DISORDER
     Dosage: 40 MG, 2X/DAY
  7. METOPROLOL TARTRATE [Suspect]
     Indication: CARDIAC DISORDER
     Dosage: ^25 MG, 1.5 TABLETS TWO TIMES A DAY^
     Route: 048
  8. CORDARONE [Suspect]
     Indication: HEART RATE IRREGULAR
     Dosage: STARTED 2 1/2 YEARS AGO, DOSE AND FREQUENCY, UNK
     Dates: end: 20091105
  9. POTASSIUM CHLORIDE [Concomitant]
     Indication: CARDIAC DISORDER
     Dosage: 20 UG, DAILY

REACTIONS (5)
  - ACTIVITIES OF DAILY LIVING IMPAIRED [None]
  - MOVEMENT DISORDER [None]
  - MUSCULAR WEAKNESS [None]
  - TREMOR [None]
  - ASTHENIA [None]
